FAERS Safety Report 8598694-2 (Version None)
Quarter: 2012Q3

REPORT INFORMATION
  Report Type: 
  Country: None (occurrence: None)
  Receive Date: 20120816
  Receipt Date: 20120806
  Transmission Date: 20120928
  Serious: No
  Sender: FDA-Public Use
  Company Number: US-ASTRAZENECA-2012SE42158

PATIENT
  Age: 53 Year
  Sex: Female
  Weight: 111.1 kg

DRUGS (2)
  1. SEROQUEL [Suspect]
     Indication: CONVULSION
     Route: 048
     Dates: start: 20120501
  2. SEROQUEL [Suspect]
     Route: 048

REACTIONS (3)
  - DRUG DOSE OMISSION [None]
  - INSOMNIA [None]
  - OFF LABEL USE [None]
